FAERS Safety Report 4270193-8 (Version None)
Quarter: 2004Q1

REPORT INFORMATION
  Report Type: 
  Country: None (occurrence: None)
  Receive Date: 20040112
  Receipt Date: 20040102
  Transmission Date: 20041129
  Serious: Yes (Hospitalization, Other)
  Sender: FDA-Public Use
  Company Number: 2004000511

PATIENT
  Age: 45 Year
  Sex: Female
  Weight: 113.3993 kg

DRUGS (4)
  1. LIPITOR [Suspect]
     Indication: BLOOD CHOLESTEROL INCREASED
     Dosage: 10 MG (DAILY), ORAL
     Route: 048
  2. FLUOXETINE HCL [Concomitant]
  3. OXYCOCET (PARACETAMOL, OXYCODONE HYDROCHLORIDE) [Concomitant]
  4. CARISOPRODOL [Concomitant]

REACTIONS (12)
  - ARTHRITIS [None]
  - AXILLARY MASS [None]
  - BREAST CANCER [None]
  - CONDITION AGGRAVATED [None]
  - CRYING [None]
  - DEPRESSION [None]
  - EMOTIONAL DISTRESS [None]
  - INSOMNIA [None]
  - LUNG DISORDER [None]
  - MEDICATION ERROR [None]
  - PHARMACEUTICAL PRODUCT COMPLAINT [None]
  - VISION BLURRED [None]
